FAERS Safety Report 11596318 (Version 2)
Quarter: 2015Q4

REPORT INFORMATION
  Report Type: Spontaneous
  Country: US (occurrence: US)
  Receive Date: 20151006
  Receipt Date: 20151029
  Transmission Date: 20160304
  Serious: Yes (Hospitalization)
  Sender: FDA-Public Use
  Company Number: US-PFIZER INC-2015330074

PATIENT
  Age: 61 Year
  Sex: Male
  Weight: 54 kg

DRUGS (1)
  1. VFEND [Suspect]
     Active Substance: VORICONAZOLE
     Dosage: UNK

REACTIONS (2)
  - Fall [Unknown]
  - Accident [Unknown]

NARRATIVE: CASE EVENT DATE: 20150925
